FAERS Safety Report 24141165 (Version 2)
Quarter: 2024Q3

REPORT INFORMATION
  Report Type: Report from Study
  Country: IQ (occurrence: IQ)
  Receive Date: 20240726
  Receipt Date: 20240802
  Transmission Date: 20241016
  Serious: Yes (Other)
  Sender: REGENERON
  Company Number: IQ-BAYER-2024A105877

PATIENT
  Age: 61 Year
  Sex: Male

DRUGS (1)
  1. EYLEA [Suspect]
     Active Substance: AFLIBERCEPT
     Indication: Diabetic retinal oedema
     Dosage: 14 DOSE IN BOTH EYES, INJECT, MONTHLY; SOLUTION FOR INJECTION; 40MG/ML
     Route: 031
     Dates: start: 2023

REACTIONS (1)
  - Visual impairment [Recovering/Resolving]

NARRATIVE: CASE EVENT DATE: 20240719
